FAERS Safety Report 8384177-1 (Version None)
Quarter: 2012Q2

REPORT INFORMATION
  Report Type: 
  Country: None (occurrence: None)
  Receive Date: 20120524
  Receipt Date: 20120522
  Transmission Date: 20120825
  Serious: Yes (Other)
  Sender: FDA-Public Use
  Company Number: US-PFIZER INC-2012113761

PATIENT
  Sex: Female
  Weight: 108.84 kg

DRUGS (5)
  1. LYRICA [Suspect]
     Indication: POOR PERIPHERAL CIRCULATION
     Dosage: 150 (75MG TWO CAPSULES), 2X/DAY
     Route: 048
     Dates: end: 20120501
  2. ASPIRIN [Concomitant]
     Dosage: 81 MG, UNK
  3. LYRICA [Suspect]
     Indication: PAIN IN EXTREMITY
  4. LIPITOR [Concomitant]
     Indication: BLOOD CHOLESTEROL INCREASED
     Dosage: 20 MG, UNK
  5. CELEBREX [Suspect]
     Indication: ARTHRITIS
     Dosage: 400 MG, 1X/DAY
     Route: 048
     Dates: start: 20020101, end: 20120401

REACTIONS (6)
  - CEREBROVASCULAR ACCIDENT [None]
  - DYSSTASIA [None]
  - INSOMNIA [None]
  - TRANSIENT ISCHAEMIC ATTACK [None]
  - ACTIVITIES OF DAILY LIVING IMPAIRED [None]
  - GAIT DISTURBANCE [None]
